FAERS Safety Report 10217146 (Version 1)
Quarter: 2014Q2

REPORT INFORMATION
  Report Type: Spontaneous
  Country: GR (occurrence: GR)
  Receive Date: 20140604
  Receipt Date: 20140604
  Transmission Date: 20141212
  Serious: Yes (Other)
  Sender: FDA-Public Use
  Company Number: PHHY2014GR067904

PATIENT
  Age: 90 Year
  Sex: Female

DRUGS (3)
  1. GALVUS [Suspect]
     Indication: DIABETES MELLITUS
     Dosage: 1 DF, DAILY
  2. GALVUS [Suspect]
     Dosage: 2 DF, UNK
  3. STARLIX [Suspect]
     Indication: DIABETES MELLITUS
     Dosage: 1 DF, DAILY

REACTIONS (2)
  - Cerebrovascular accident [Unknown]
  - Incorrect dose administered [Unknown]
